FAERS Safety Report 6769750-6 (Version None)
Quarter: 2010Q2

REPORT INFORMATION
  Report Type: 
  Country: None (occurrence: None)
  Receive Date: 20100615
  Receipt Date: 20100608
  Transmission Date: 20101027
  Serious: Yes (Life-Threatening, Hospitalization)
  Sender: FDA-Public Use
  Company Number: US-ROCHE-708841

PATIENT
  Sex: Female
  Weight: 50.9 kg

DRUGS (5)
  1. BEVACIZUMAB [Suspect]
     Indication: GLIOBLASTOMA
     Route: 042
     Dates: start: 20100504
  2. TOPOTECAN [Suspect]
     Indication: GLIOBLASTOMA
     Route: 048
     Dates: start: 20100505, end: 20100509
  3. TEMOZOLOMIDE [Suspect]
     Indication: GLIOBLASTOMA
     Route: 048
     Dates: start: 20100504, end: 20100508
  4. HYDROCORTISONE [Concomitant]
     Dosage: 20 MG: 9 AM. 10 MG: 9 PM
  5. MEDROL [Concomitant]

REACTIONS (3)
  - PANCYTOPENIA [None]
  - PNEUMONIA CYTOMEGALOVIRAL [None]
  - RESPIRATORY FAILURE [None]
